FAERS Safety Report 10712246 (Version 1)
Quarter: 2015Q1

REPORT INFORMATION
  Report Type: Spontaneous
  Country: US (occurrence: US)
  Receive Date: 20150114
  Receipt Date: 20150114
  Transmission Date: 20150721
  Serious: Yes (Death, Other)
  Sender: FDA-Public Use
  Company Number: US-GLAXOSMITHKLINE-US2015GSK003014

PATIENT
  Age: 55 Year
  Sex: Male

DRUGS (3)
  1. DOXEPIN [Suspect]
     Active Substance: DOXEPIN
     Route: 048
  2. ETHANOL [Suspect]
     Active Substance: ALCOHOL
  3. LAMOTRIGINE. [Suspect]
     Active Substance: LAMOTRIGINE
     Route: 048

REACTIONS (1)
  - Completed suicide [Fatal]
